FAERS Safety Report 17405000 (Version 4)
Quarter: 2025Q1

REPORT INFORMATION
  Report Type: Spontaneous
  Country: GB (occurrence: GB)
  Receive Date: 20200211
  Receipt Date: 20250311
  Transmission Date: 20250408
  Serious: Yes (Death, Other)
  Sender: AUROBINDO
  Company Number: GB-MHRA-EYC 00216773

PATIENT
  Age: 14 Year
  Sex: Male
  Weight: 45 kg

DRUGS (6)
  1. MONTELUKAST SODIUM [Suspect]
     Active Substance: MONTELUKAST SODIUM
     Indication: Asthma
     Dosage: 5 MILLIGRAM, ONCE A DAY
     Route: 048
     Dates: start: 201511, end: 201802
  2. MONTELUKAST SODIUM [Suspect]
     Active Substance: MONTELUKAST SODIUM
     Dosage: 5 MILLIGRAM, ONCE A DAY (AT NIGHT)
     Route: 048
     Dates: start: 20150315, end: 201802
  3. BECLOMETHASONE DIPROPIONATE [Concomitant]
     Active Substance: BECLOMETHASONE DIPROPIONATE
     Indication: Asthma
     Dosage: 1-2 PUFF TWICE A DAY
     Route: 065
  4. BECLOMETHASONE DIPROPIONATE [Concomitant]
     Active Substance: BECLOMETHASONE DIPROPIONATE
     Route: 055
  5. ALBUTEROL SULFATE [Concomitant]
     Active Substance: ALBUTEROL SULFATE
     Indication: Asthma
     Route: 065
  6. VENTOLIN [Concomitant]
     Active Substance: ALBUTEROL SULFATE
     Indication: Product used for unknown indication
     Route: 065

REACTIONS (11)
  - Self-destructive behaviour [Fatal]
  - Hallucination, auditory [Fatal]
  - Completed suicide [Fatal]
  - Suicidal ideation [Fatal]
  - Sleep disorder [Fatal]
  - Anxiety [Fatal]
  - Paranoia [Fatal]
  - Agitation [Fatal]
  - Anger [Fatal]
  - Depression [Fatal]
  - Mental disorder [Fatal]

NARRATIVE: CASE EVENT DATE: 20170101
